FAERS Safety Report 17835664 (Version 1)
Quarter: 2020Q2

REPORT INFORMATION
  Report Type: Spontaneous
  Country: ES (occurrence: ES)
  Receive Date: 20200528
  Receipt Date: 20200528
  Transmission Date: 20200714
  Serious: Yes (Hospitalization)
  Sender: FDA-Public Use
  Company Number: ES-SA-2020SA135838

PATIENT
  Age: 66 Year
  Sex: Male

DRUGS (5)
  1. ENOXAPARIN SODIUM. [Suspect]
     Active Substance: ENOXAPARIN SODIUM
     Dosage: 40 MG, Q12H (40MG / 12H FROM 1-2 / 04, FOLLOWED BY 20MG DAY 3 TO 10/04, FOLLOWED BY 80MG / 12H FROM
     Route: 065
     Dates: start: 20200401, end: 20200402
  2. ENOXAPARIN SODIUM. [Suspect]
     Active Substance: ENOXAPARIN SODIUM
     Dosage: 80 MG, Q12H (40MG/12H DEL 1-2/04, SEGUIDO DE 20MG D?A 3 AL 10/04, SEGUIDO DE 80MG/12H DEL 11 AL 22/0
     Route: 065
     Dates: start: 20200411, end: 20200422
  3. TOCILIZUMAB. [Suspect]
     Active Substance: TOCILIZUMAB
     Indication: COVID-19
     Dosage: 600 MG, TOTAL
     Route: 042
     Dates: start: 20200401, end: 20200401
  4. TOCILIZUMAB. [Suspect]
     Active Substance: TOCILIZUMAB
     Indication: COVID-19 PNEUMONIA
  5. ENOXAPARIN SODIUM. [Suspect]
     Active Substance: ENOXAPARIN SODIUM
     Dosage: 20 MG, QD (40MG / 12H FROM 1-2 / 04, FOLLOWED BY 20MG DAY 3 TO 10/04, FOLLOWED BY 80MG / 12H FROM 11
     Route: 065
     Dates: start: 20200403, end: 20200410

REACTIONS (2)
  - Hypofibrinogenaemia [Recovered/Resolved]
  - Wound haemorrhage [Recovering/Resolving]

NARRATIVE: CASE EVENT DATE: 20200404
